FAERS Safety Report 10073522 (Version 5)
Quarter: 2014Q3

REPORT INFORMATION
  Report Type: Spontaneous
  Country: IT (occurrence: IT)
  Receive Date: 20140411
  Receipt Date: 20140716
  Transmission Date: 20150326
  Serious: Yes (Hospitalization)
  Sender: FDA-Public Use
  Company Number: IT-ABBVIE-14P-083-1225187-00

PATIENT
  Age: 20 Year
  Sex: Male

DRUGS (5)
  1. LORAZEPAM. [Suspect]
     Active Substance: LORAZEPAM
     Indication: DRUG ABUSE
     Route: 048
     Dates: start: 20140321, end: 20140321
  2. DELORAZEPAM [Suspect]
     Active Substance: DELORAZEPAM
     Indication: DRUG ABUSE
     Route: 048
     Dates: start: 20140321, end: 20140321
  3. DEPAKENE [Suspect]
     Active Substance: VALPROIC ACID
     Indication: DRUG ABUSE
     Dosage: EXTENDED RELEASE
     Route: 048
     Dates: start: 20140321, end: 20140321
  4. ZOLOFT [Suspect]
     Active Substance: SERTRALINE HYDROCHLORIDE
     Indication: DRUG ABUSE
     Route: 048
     Dates: start: 20140321, end: 20140321
  5. DEPAKENE [Suspect]
     Active Substance: VALPROIC ACID
     Route: 048
     Dates: start: 20140321, end: 20140321

REACTIONS (4)
  - Intentional overdose [Recovered/Resolved]
  - Coma [Recovered/Resolved]
  - Mydriasis [Recovered/Resolved]
  - Drug abuse [Unknown]

NARRATIVE: CASE EVENT DATE: 20140321
